FAERS Safety Report 8534968-9 (Version None)
Quarter: 2012Q3

REPORT INFORMATION
  Report Type: 
  Country: None (occurrence: None)
  Receive Date: 20120724
  Receipt Date: 20120719
  Transmission Date: 20120928
  Serious: No
  Sender: FDA-Public Use
  Company Number: US-PFIZER INC-2012175782

PATIENT
  Sex: Female
  Weight: 49.9 kg

DRUGS (2)
  1. ESTRADIOL [Concomitant]
     Dosage: 2 MG, UNK
  2. ESTRING [Suspect]
     Indication: HORMONE REPLACEMENT THERAPY
     Dosage: 2 MG, UNK
     Route: 067
     Dates: start: 20120718, end: 20120718

REACTIONS (1)
  - VULVOVAGINAL PAIN [None]
